FAERS Safety Report 11515964 (Version 1)
Quarter: 2015Q3

REPORT INFORMATION
  Report Type: Spontaneous
  Country: US (occurrence: US)
  Receive Date: 20150916
  Receipt Date: 20150916
  Transmission Date: 20151125
  Serious: No
  Sender: FDA-Public Use
  Company Number: US-GLENMARK PHARMACEUTICALS INC, USA.-2014GMK011721

PATIENT
  Age: 16 Year
  Sex: Female

DRUGS (1)
  1. HEATHER [Suspect]
     Active Substance: NORETHINDRONE
     Dosage: UNK

REACTIONS (6)
  - Anxiety [Unknown]
  - Abnormal behaviour [Unknown]
  - Anger [Unknown]
  - Depression [Unknown]
  - Inappropriate affect [Unknown]
  - Product use issue [Unknown]
